FAERS Safety Report 9640436 (Version 1)
Quarter: 2013Q4

REPORT INFORMATION
  Report Type: Spontaneous
  Country: US (occurrence: None)
  Receive Date: 20131021
  Receipt Date: 20131021
  Transmission Date: 20140711
  Serious: Yes (Hospitalization)
  Sender: FDA-Public Use
  Company Number: BACL20130013

PATIENT
  Age: 3 Day
  Sex: Male

DRUGS (1)
  1. BACLOFEN [Suspect]
     Indication: FOETAL EXPOSURE DURING PREGNANCY
     Dosage: 90 MG, 3 IN 1 D, TRANSPLACENTAL
     Route: 064

REACTIONS (5)
  - Drug withdrawal syndrome neonatal [None]
  - Caesarean section [None]
  - Premature baby [None]
  - Low birth weight baby [None]
  - Maternal drugs affecting foetus [None]
